FAERS Safety Report 4550082-1 (Version None)
Quarter: 2005Q1

REPORT INFORMATION
  Report Type: 
  Country: None (occurrence: None)
  Receive Date: 20050110
  Receipt Date: 20050103
  Transmission Date: 20050727
  Serious: Yes (Hospitalization)
  Sender: FDA-Public Use
  Company Number: 2005UW00077

PATIENT
  Age: 36 Year
  Sex: Female

DRUGS (3)
  1. SEROQUEL [Suspect]
     Dosage: 4 G ONCE PO
     Route: 048
     Dates: start: 20041001, end: 20041001
  2. SEROQUEL [Suspect]
  3. KLONOPIN [Suspect]

REACTIONS (5)
  - ARRHYTHMIA [None]
  - ELECTROCARDIOGRAM QT CORRECTED INTERVAL PROLONGED [None]
  - INTENTIONAL MISUSE [None]
  - SUICIDE ATTEMPT [None]
  - TORSADE DE POINTES [None]
